FAERS Safety Report 8118338-3 (Version None)
Quarter: 2012Q1

REPORT INFORMATION
  Report Type: 
  Country: None (occurrence: None)
  Receive Date: 20120207
  Receipt Date: 20120118
  Transmission Date: 20120608
  Serious: Yes (Other)
  Sender: FDA-Public Use
  Company Number: FR-PFIZER INC-2011146367

PATIENT
  Age: 58 Year
  Sex: Male

DRUGS (1)
  1. TORISEL [Suspect]
     Indication: RENAL CANCER METASTATIC
     Dosage: 25 MG, WEEKLY
     Route: 042
     Dates: start: 20110201

REACTIONS (4)
  - GENITAL HERPES [None]
  - GENITAL ULCERATION [None]
  - GOUT [None]
  - APHTHOUS STOMATITIS [None]
